FAERS Safety Report 8060298-8 (Version None)
Quarter: 2012Q1

REPORT INFORMATION
  Report Type: 
  Country: None (occurrence: None)
  Receive Date: 20120120
  Receipt Date: 20120117
  Transmission Date: 20120608
  Serious: Yes (Death, Other)
  Sender: FDA-Public Use
  Company Number: TW-PFIZER INC-2012004724

PATIENT
  Age: 36 Year
  Sex: Female

DRUGS (16)
  1. ALPRAZOLAM [Suspect]
     Dosage: 15 MG
  2. LORAZEPAM [Suspect]
     Dosage: 10 MG
  3. ESTAZOLAM [Suspect]
     Dosage: 2 MG, 1X/DAY
  4. MOCLOBEMIDE [Suspect]
     Dosage: 150 MG, 3X/DAY
  5. ESTAZOLAM [Suspect]
     Dosage: 20 MG
  6. BROMAZEPAM [Suspect]
     Dosage: 6 MG, 1X/DAY
  7. MIDAZOLAM [Suspect]
     Dosage: 7.5 MG, AT BEDTIME
  8. PROPRANOLOL HCL [Suspect]
     Dosage: 10 MG, 3X/DAY
  9. PROPRANOLOL HCL [Suspect]
     Dosage: 300 MG
  10. MOCLOBEMIDE [Suspect]
     Dosage: 4,500 MG
  11. FLUOXETINE [Suspect]
     Dosage: 20 MG, 1X/DAY
  12. ALPRAZOLAM [Suspect]
     Dosage: 0.5 MG, 3X/DAY
  13. LORAZEPAM [Suspect]
     Dosage: 1 MG, 1X/DAY
  14. FLUOXETINE [Suspect]
     Dosage: 200 MG
  15. BROMAZEPAM [Suspect]
     Dosage: 60 MG
  16. MIDAZOLAM [Suspect]
     Dosage: 75 MG

REACTIONS (30)
  - UNRESPONSIVE TO STIMULI [None]
  - TREMOR [None]
  - DISSEMINATED INTRAVASCULAR COAGULATION [None]
  - RESPIRATORY RATE INCREASED [None]
  - CONVULSION [None]
  - MULTIPLE DRUG OVERDOSE INTENTIONAL [None]
  - ELECTROCARDIOGRAM QRS COMPLEX PROLONGED [None]
  - ELECTROCARDIOGRAM QT PROLONGED [None]
  - INTENTIONAL OVERDOSE [None]
  - BLOOD PH DECREASED [None]
  - MYDRIASIS [None]
  - MUSCLE TWITCHING [None]
  - PUPILLARY REFLEX IMPAIRED [None]
  - COMPLETED SUICIDE [None]
  - HYPERHIDROSIS [None]
  - BRADYCARDIA [None]
  - VENTRICULAR ARRHYTHMIA [None]
  - RESPIRATORY FAILURE [None]
  - SEROTONIN SYNDROME [None]
  - LEUKOCYTOSIS [None]
  - MUSCLE RIGIDITY [None]
  - HYPOTENSION [None]
  - RENAL FAILURE [None]
  - NERVOUS SYSTEM DISORDER [None]
  - CHILLS [None]
  - CIRCULATORY COLLAPSE [None]
  - COMA [None]
  - BLOOD GLUCOSE INCREASED [None]
  - RHABDOMYOLYSIS [None]
  - SINUS TACHYCARDIA [None]
